FAERS Safety Report 7329860-1 (Version None)
Quarter: 2011Q1

REPORT INFORMATION
  Report Type: 
  Country: None (occurrence: None)
  Receive Date: 20110303
  Receipt Date: 20110302
  Transmission Date: 20110831
  Serious: Yes (Hospitalization, Congenital Anomaly)
  Sender: FDA-Public Use
  Company Number: DE-PFIZER INC-2011041120

PATIENT
  Sex: Male
  Weight: 3.5 kg

DRUGS (1)
  1. ZELDOX [Suspect]
     Indication: SCHIZOPHRENIA
     Dosage: 120 MG, 1X/DAY
     Route: 064

REACTIONS (2)
  - EXOMPHALOS [None]
  - DRUG EXPOSURE DURING PREGNANCY [None]
